FAERS Safety Report 10142270 (Version 1)
Quarter: 2014Q2

REPORT INFORMATION
  Report Type: Report from Study
  Country: US (occurrence: US)
  Receive Date: 20140429
  Receipt Date: 20140429
  Transmission Date: 20141212
  Serious: Yes (Other)
  Sender: FDA-Public Use
  Company Number: PHEH2014US008401

PATIENT
  Age: 71 Year
  Sex: Female

DRUGS (4)
  1. GLEEVEC [Suspect]
     Indication: CHRONIC MYELOID LEUKAEMIA
     Dosage: 400 MG, QD
     Route: 048
     Dates: start: 20030101
  2. AMLODIPINE [Concomitant]
     Dosage: UNK UKN, UNK
  3. SYNTHROID [Concomitant]
     Dosage: UNK UKN, UNK
  4. PREMARIN [Concomitant]
     Dosage: UNK UKN, UNK

REACTIONS (2)
  - Fall [Not Recovered/Not Resolved]
  - Musculoskeletal chest pain [Not Recovered/Not Resolved]
